FAERS Safety Report 5858118-2 (Version None)
Quarter: 2008Q3

REPORT INFORMATION
  Report Type: 
  Country: None (occurrence: None)
  Receive Date: 20080826
  Receipt Date: 20080825
  Transmission Date: 20090109
  Serious: Yes (Disabling, Other)
  Sender: FDA-Public Use
  Company Number: JP-BRISTOL-MYERS SQUIBB COMPANY-14229041

PATIENT
  Age: 62 Year
  Sex: Female

DRUGS (5)
  1. TAXOL [Suspect]
     Indication: BREAST CANCER
     Dosage: TAXOL 90MG, 3/1 MONTH WAS ALSO ADMINISTRATED FROM 10-AUG-2007 TO 30-MAY-2008
     Route: 041
     Dates: start: 20070810, end: 20080516
  2. AVASTIN [Suspect]
     Indication: BREAST CANCER
     Route: 041
     Dates: start: 20070810, end: 20080530
  3. ASCORBIC ACID [Concomitant]
  4. PIRENOXINE SODIUM [Concomitant]
  5. CYANOCOBALAMIN [Concomitant]

REACTIONS (1)
  - MACULAR OEDEMA [None]
